FAERS Safety Report 6552957-0 (Version None)
Quarter: 2010Q1

REPORT INFORMATION
  Report Type: 
  Country: None (occurrence: None)
  Receive Date: 20100127
  Receipt Date: 20100113
  Transmission Date: 20100710
  Serious: Yes (Hospitalization)
  Sender: FDA-Public Use
  Company Number: US-RANBAXY-2010US-30539

PATIENT

DRUGS (3)
  1. VERAPAMIL [Suspect]
     Indication: VENTRICULAR TACHYCARDIA
     Dosage: UNK, UNK
     Route: 065
  2. FLECAINIDE ACETATE [Suspect]
     Indication: VENTRICULAR TACHYCARDIA
     Route: 065
  3. LANDIOLOL [Suspect]
     Indication: VENTRICULAR TACHYCARDIA
     Route: 065

REACTIONS (5)
  - DRUG INEFFECTIVE [None]
  - DRUG INTERACTION [None]
  - ELECTROCARDIOGRAM QT PROLONGED [None]
  - OFF LABEL USE [None]
  - VENTRICULAR TACHYCARDIA [None]
